FAERS Safety Report 16638277 (Version 1)
Quarter: 2019Q3

REPORT INFORMATION
  Report Type: Spontaneous
  Country: US (occurrence: US)
  Receive Date: 20190726
  Receipt Date: 20190726
  Transmission Date: 20191004
  Serious: No
  Sender: FDA-Public Use
  Company Number: US-ASTRAZENECA-2019SE95600

PATIENT
  Sex: Female
  Weight: 48.9 kg

DRUGS (36)
  1. FASENRA [Suspect]
     Active Substance: BENRALIZUMAB
     Indication: CHRONIC OBSTRUCTIVE PULMONARY DISEASE
     Dosage: EVERY 4 WEEKS FOR THE FIRST 3 DOSES, FOLLOWED BY EVERY 8 WEEKS
     Route: 058
     Dates: start: 20190222
  2. FASENRA [Suspect]
     Active Substance: BENRALIZUMAB
     Indication: CHRONIC OBSTRUCTIVE PULMONARY DISEASE
     Route: 058
     Dates: start: 20190322
  3. XOPENEX LEVALBUTEROL HCL [Concomitant]
     Indication: EMPHYSEMA
     Dosage: 1.25MG/0.5ML SOLN 3 OR 4 TIMES A DAY
     Route: 055
  4. GENERIC MUCINEX [Concomitant]
     Indication: ASTHMA
     Dosage: 15 YEARS
     Route: 048
  5. BUDESONIDE. [Suspect]
     Active Substance: BUDESONIDE
     Indication: CHRONIC OBSTRUCTIVE PULMONARY DISEASE
     Dosage: 0.25MG/2ML SUSPENSION TWICE A DAY
     Route: 055
  6. BUDESONIDE. [Suspect]
     Active Substance: BUDESONIDE
     Indication: ASTHMA
     Dosage: 0.25MG/2ML SUSPENSION TWICE A DAY
     Route: 055
  7. FASENRA [Suspect]
     Active Substance: BENRALIZUMAB
     Indication: ASTHMA
     Dosage: EVERY 4 WEEKS FOR THE FIRST 3 DOSES, FOLLOWED BY EVERY 8 WEEKS
     Route: 058
     Dates: start: 20190222
  8. FASENRA [Suspect]
     Active Substance: BENRALIZUMAB
     Indication: EMPHYSEMA
     Route: 058
     Dates: start: 20190419
  9. FASENRA [Suspect]
     Active Substance: BENRALIZUMAB
     Indication: ASTHMA
     Route: 058
     Dates: start: 20190419
  10. GENERIC MUCINEX [Concomitant]
     Indication: ASTHMA
     Route: 048
  11. GENERIC MUCINEX [Concomitant]
     Indication: EMPHYSEMA
     Route: 048
  12. GENERIC MUCINEX [Concomitant]
     Indication: EMPHYSEMA
     Dosage: 15 YEARS
     Route: 048
  13. FASENRA [Suspect]
     Active Substance: BENRALIZUMAB
     Indication: EMPHYSEMA
     Route: 058
     Dates: start: 20190322
  14. FASENRA [Suspect]
     Active Substance: BENRALIZUMAB
     Indication: ASTHMA
     Route: 058
     Dates: start: 20190621
  15. GENERIC MUCINEX [Concomitant]
     Indication: CHRONIC OBSTRUCTIVE PULMONARY DISEASE
     Dosage: 15 YEARS
     Route: 048
  16. GENERIC MUCINEX [Concomitant]
     Indication: CHRONIC OBSTRUCTIVE PULMONARY DISEASE
     Route: 048
  17. GENERIC FLONASE [Concomitant]
     Indication: MULTIPLE ALLERGIES
     Route: 045
  18. CALCIUM [Concomitant]
     Active Substance: CALCIUM
     Indication: OSTEOPOROSIS
     Dosage: UNKNOWN
     Route: 048
  19. SENIOR MULTI VITAMIN [Concomitant]
     Route: 048
  20. GENERIC FLONASE [Concomitant]
     Indication: MULTIPLE ALLERGIES
     Dosage: 1 PUFF IN EACH NOSTRIL AS OF 5 YEARS AGO
     Route: 045
  21. IPRATROPIUM BROMIDE NEBULIZER [Concomitant]
     Indication: ASTHMA
     Dosage: 0.02 SOLUTION SUPPOSED TO DO 4 TIMES A DAY
     Route: 055
  22. FASENRA [Suspect]
     Active Substance: BENRALIZUMAB
     Indication: ASTHMA
     Route: 058
     Dates: start: 20190322
  23. SPIRIVA [Concomitant]
     Active Substance: TIOTROPIUM BROMIDE MONOHYDRATE
     Indication: EMPHYSEMA
     Route: 055
     Dates: start: 2014
  24. XPENEX LEVALBUTEROL INH HFA [Concomitant]
     Indication: ASTHMA
     Dosage: 45.0UG UNKNOWN
     Route: 055
  25. IPRATROPIUM BROMIDE NEBULIZER [Concomitant]
     Indication: EMPHYSEMA
     Dosage: 0.02 SOLUTION SUPPOSED TO DO 4 TIMES A DAY
     Route: 055
  26. FASENRA [Suspect]
     Active Substance: BENRALIZUMAB
     Indication: EMPHYSEMA
     Dosage: EVERY 4 WEEKS FOR THE FIRST 3 DOSES, FOLLOWED BY EVERY 8 WEEKS
     Route: 058
     Dates: start: 20190222
  27. FASENRA [Suspect]
     Active Substance: BENRALIZUMAB
     Indication: CHRONIC OBSTRUCTIVE PULMONARY DISEASE
     Route: 058
     Dates: start: 20190621
  28. FASENRA [Suspect]
     Active Substance: BENRALIZUMAB
     Indication: EMPHYSEMA
     Route: 058
     Dates: start: 20190621
  29. XOPENEX LEVALBUTEROL HCL [Concomitant]
     Indication: ASTHMA
     Dosage: 1.25MG/0.5ML SOLN 3 OR 4 TIMES A DAY
     Route: 055
  30. SENIOR MULTI VITAMIN [Concomitant]
     Dosage: 15 YEARS AGO
     Route: 048
  31. IPRATROPIUM BROMIDE NEBULIZER [Concomitant]
     Indication: CHRONIC OBSTRUCTIVE PULMONARY DISEASE
     Dosage: 0.02 SOLUTION SUPPOSED TO DO 4 TIMES A DAY
     Route: 055
  32. BUDESONIDE. [Suspect]
     Active Substance: BUDESONIDE
     Indication: EMPHYSEMA
     Dosage: 0.25MG/2ML SUSPENSION TWICE A DAY
     Route: 055
  33. FASENRA [Suspect]
     Active Substance: BENRALIZUMAB
     Indication: CHRONIC OBSTRUCTIVE PULMONARY DISEASE
     Route: 058
     Dates: start: 20190419
  34. XOPENEX LEVALBUTEROL HCL [Concomitant]
     Indication: CHRONIC OBSTRUCTIVE PULMONARY DISEASE
     Dosage: 1.25MG/0.5ML SOLN 3 OR 4 TIMES A DAY
     Route: 055
  35. XPENEX LEVALBUTEROL INH HFA [Concomitant]
     Indication: EMPHYSEMA
     Dosage: 45.0UG UNKNOWN
     Route: 055
  36. BABY ASPIRIN [Concomitant]
     Active Substance: ASPIRIN
     Indication: ANTICOAGULANT THERAPY
     Route: 048
     Dates: start: 2009

REACTIONS (10)
  - Decreased activity [Unknown]
  - Asthma [Unknown]
  - Weight increased [Unknown]
  - Nausea [Recovered/Resolved]
  - Chronic obstructive pulmonary disease [Unknown]
  - Weight decreased [Unknown]
  - Symptom recurrence [Unknown]
  - Emphysema [Unknown]
  - Fatigue [Recovered/Resolved]
  - Somnolence [Unknown]
